FAERS Safety Report 5731063-9 (Version None)
Quarter: 2008Q2

REPORT INFORMATION
  Report Type: 
  Country: None (occurrence: None)
  Receive Date: 20080507
  Receipt Date: 20080429
  Transmission Date: 20081010
  Serious: No
  Sender: FDA-Public Use
  Company Number: US-MERCK-0804USA01975

PATIENT
  Age: 13 Year
  Sex: Male

DRUGS (1)
  1. SINGULAIR [Suspect]
     Route: 048
     Dates: start: 20060301, end: 20080101

REACTIONS (3)
  - AGORAPHOBIA [None]
  - DEPRESSIVE SYMPTOM [None]
  - PANIC ATTACK [None]
